FAERS Safety Report 8023024-4 (Version None)
Quarter: 2012Q1

REPORT INFORMATION
  Report Type: 
  Country: None (occurrence: None)
  Receive Date: 20120104
  Receipt Date: 20111230
  Transmission Date: 20120608
  Serious: Yes (Hospitalization)
  Sender: FDA-Public Use
  Company Number: PHHO2011FR021809

PATIENT
  Sex: Female

DRUGS (1)
  1. FTY [Suspect]
     Indication: RELAPSING-REMITTING MULTIPLE SCLEROSIS
     Dosage: 0.5 MG, UNK
     Route: 048
     Dates: start: 20111130, end: 20111230

REACTIONS (3)
  - TONGUE BITING [None]
  - URINE ABNORMALITY [None]
  - LOSS OF CONSCIOUSNESS [None]
